FAERS Safety Report 5529181-3 (Version None)
Quarter: 2007Q4

REPORT INFORMATION
  Report Type: 
  Country: None (occurrence: None)
  Receive Date: 20071129
  Receipt Date: 20070411
  Transmission Date: 20080405
  Serious: No
  Sender: FDA-Public Use
  Company Number: A0646793A

PATIENT
  Sex: Female

DRUGS (1)
  1. WELLBUTRIN XR [Suspect]
     Indication: DEPRESSION
     Dosage: 300MG PER DAY
     Route: 048
     Dates: start: 20060101

REACTIONS (1)
  - ARTHRALGIA [None]
